FAERS Safety Report 13003482 (Version 3)
Quarter: 2017Q1

REPORT INFORMATION
  Report Type: Spontaneous
  Country: FR (occurrence: FR)
  Receive Date: 20161206
  Receipt Date: 20170116
  Transmission Date: 20170428
  Serious: Yes (Death, Other)
  Sender: FDA-Public Use
  Company Number: PHHY2016FR163958

PATIENT
  Age: 84 Year
  Sex: Male
  Weight: 63 kg

DRUGS (4)
  1. LOVENOX [Concomitant]
     Active Substance: ENOXAPARIN SODIUM
     Indication: THROMBOSIS PROPHYLAXIS
     Dosage: 40 OT, QD
     Route: 058
  2. DOLIPRANE [Concomitant]
     Active Substance: ACETAMINOPHEN
     Indication: PRODUCT USED FOR UNKNOWN INDICATION
     Dosage: 1 G, QD (4 DF PER DAY)
     Route: 048
  3. SANDOSTATIN LAR DEPOT [Suspect]
     Active Substance: OCTREOTIDE ACETATE
     Indication: CARCINOID TUMOUR OF THE GASTROINTESTINAL TRACT
     Dosage: 30 MG, QMO
     Route: 030
     Dates: start: 20161228, end: 20161228
  4. LASILIX - SLOW RELEASE [Concomitant]
     Indication: CARDIAC FAILURE
     Dosage: 60 OT, QD
     Route: 048

REACTIONS (6)
  - Fall [Unknown]
  - Incorrect route of drug administration [Unknown]
  - Malignant neoplasm progression [Fatal]
  - Femoral neck fracture [Recovered/Resolved]
  - Liver injury [Unknown]
  - Right ventricular failure [Unknown]

NARRATIVE: CASE EVENT DATE: 20161028
